FAERS Safety Report 9475529 (Version 3)
Quarter: 2013Q3

REPORT INFORMATION
  Report Type: Spontaneous
  Country: BR (occurrence: BR)
  Receive Date: 20130826
  Receipt Date: 20130902
  Transmission Date: 20140515
  Serious: Yes (Death, Hospitalization, Other)
  Sender: FDA-Public Use
  Company Number: BR-AMGEN-BRASP2013012333

PATIENT
  Age: 72 Year
  Sex: Male
  Weight: 49.98 kg

DRUGS (2)
  1. ENBREL [Suspect]
     Indication: PSORIASIS
     Dosage: 50 MG, ONCE WEEKLY
     Route: 058
     Dates: start: 201207
  2. ENBREL [Suspect]
     Dosage: 25 MG, ^2 APPLICATIONS^, UNSPECIFIED FREQUENCY
     Route: 065

REACTIONS (13)
  - Death [Fatal]
  - Intestinal perforation [Unknown]
  - Anal haemorrhage [Unknown]
  - Necrosis [Unknown]
  - Diarrhoea [Unknown]
  - Proctalgia [Unknown]
  - Walking disability [Unknown]
  - Eating disorder [Unknown]
  - Anal fissure [Unknown]
  - Anorectal discomfort [Unknown]
  - Thyroid disorder [Unknown]
  - Sepsis [Unknown]
  - Skin discolouration [Unknown]
